FAERS Safety Report 19399254 (Version 1)
Quarter: 2021Q2

REPORT INFORMATION
  Report Type: Spontaneous
  Country: NL (occurrence: NL)
  Receive Date: 20210610
  Receipt Date: 20210610
  Transmission Date: 20210717
  Serious: Yes (Other)
  Sender: FDA-Public Use
  Company Number: NL-ACCORD-227154

PATIENT
  Age: 70 Year
  Sex: Female

DRUGS (6)
  1. HYDROCHLOROTHIAZIDE. [Concomitant]
     Active Substance: HYDROCHLOROTHIAZIDE
  2. OXAZEPAM. [Concomitant]
     Active Substance: OXAZEPAM
  3. SORAFENIB [Interacting]
     Active Substance: SORAFENIB
     Indication: DISEASE RECURRENCE
     Dates: start: 201807, end: 202002
  4. SORAFENIB/SORAFENIB TOSILATE [Interacting]
     Active Substance: SORAFENIB TOSYLATE
     Indication: METASTASES TO LUNG
     Dates: start: 201807, end: 202002
  5. TACROLIMUS. [Suspect]
     Active Substance: TACROLIMUS
     Indication: IMMUNOSUPPRESSANT DRUG THERAPY
     Dates: start: 201101, end: 201808
  6. LOSARTAN. [Concomitant]
     Active Substance: LOSARTAN

REACTIONS (2)
  - Drug level decreased [Unknown]
  - Drug interaction [Unknown]

NARRATIVE: CASE EVENT DATE: 2018
